FAERS Safety Report 11833999 (Version 8)
Quarter: 2017Q2

REPORT INFORMATION
  Report Type: Other
  Country: IT (occurrence: IT)
  Receive Date: 20151214
  Receipt Date: 20170523
  Transmission Date: 20170829
  Serious: Yes (Hospitalization, Other)
  Sender: FDA-Public Use
  Company Number: IT-ARIAD PHARMACEUTICALS, INC-2015IT005831

PATIENT

DRUGS (2)
  1. ICLUSIG [Suspect]
     Active Substance: PONATINIB
     Indication: CHRONIC MYELOID LEUKAEMIA
     Dosage: 30 MG, QD
     Route: 048
     Dates: start: 20140626, end: 20151026
  2. SPRYCEL [Suspect]
     Active Substance: DASATINIB
     Indication: CHRONIC MYELOID LEUKAEMIA
     Dosage: 1 U, QD
     Route: 048
     Dates: start: 20120313, end: 20140623

REACTIONS (13)
  - Renin increased [Unknown]
  - Influenza [Unknown]
  - Pain in extremity [Unknown]
  - Musculoskeletal chest pain [Unknown]
  - Asthenia [Unknown]
  - Renal artery stenosis [Unknown]
  - Hypertension [Not Recovered/Not Resolved]
  - Lymphadenopathy [Unknown]
  - Peripheral coldness [Unknown]
  - Headache [Unknown]
  - Arthralgia [Unknown]
  - Pyrexia [Unknown]
  - Hyperhidrosis [Unknown]

NARRATIVE: CASE EVENT DATE: 20151026
